FAERS Safety Report 6998006-1 (Version None)
Quarter: 2010Q3

REPORT INFORMATION
  Report Type: 
  Country: None (occurrence: None)
  Receive Date: 20100920
  Receipt Date: 20071018
  Transmission Date: 20110219
  Serious: No
  Sender: FDA-Public Use
  Company Number: US-ASTRAZENECA-2006UW22010

PATIENT
  Age: 46 Year
  Sex: Female
  Weight: 95.3 kg

DRUGS (14)
  1. SEROQUEL [Suspect]
     Indication: DEPRESSION
     Route: 048
     Dates: start: 20030101, end: 20070101
  2. SEROQUEL [Suspect]
     Indication: BIPOLAR DISORDER
     Route: 048
     Dates: start: 20030101, end: 20070101
  3. SEROQUEL [Suspect]
     Indication: ANXIETY
     Route: 048
     Dates: start: 20030101, end: 20070101
  4. SEROQUEL [Suspect]
     Dosage: STRENGTH - 100 MG, 200 MG.  DOSE- 100 MG - 300 MG
     Route: 048
     Dates: start: 20051123
  5. SEROQUEL [Suspect]
     Dosage: STRENGTH - 100 MG, 200 MG.  DOSE- 100 MG - 300 MG
     Route: 048
     Dates: start: 20051123
  6. SEROQUEL [Suspect]
     Dosage: STRENGTH - 100 MG, 200 MG.  DOSE- 100 MG - 300 MG
     Route: 048
     Dates: start: 20051123
  7. HALDOL [Concomitant]
  8. CELEBREX [Concomitant]
     Route: 048
     Dates: start: 20031023
  9. TENORMIN [Concomitant]
     Indication: BLOOD PRESSURE
     Route: 048
     Dates: start: 20031023
  10. LORAZEPAM [Concomitant]
     Indication: MENTAL DISORDER
     Route: 048
     Dates: start: 20051027
  11. DIOVAN HCT [Concomitant]
     Dosage: STRENGTH - 160/12.5 MG.  DOSE- 160/12.5 MG DAILY
     Route: 048
     Dates: start: 20051123
  12. PAXIL [Concomitant]
     Route: 048
     Dates: start: 20061214
  13. NORVASC [Concomitant]
     Indication: BLOOD PRESSURE
     Route: 048
     Dates: start: 19990225
  14. LASIX [Concomitant]
     Route: 048
     Dates: start: 19990225

REACTIONS (3)
  - DIABETES MELLITUS [None]
  - OBESITY [None]
  - TYPE 2 DIABETES MELLITUS [None]
